FAERS Safety Report 5728280-0 (Version None)
Quarter: 2008Q2

REPORT INFORMATION
  Report Type: 
  Country: None (occurrence: None)
  Receive Date: 20080430
  Receipt Date: 20080423
  Transmission Date: 20081010
  Serious: Yes (Other)
  Sender: FDA-Public Use
  Company Number: 2008EU000764

PATIENT
  Age: 58 Year
  Sex: Female

DRUGS (1)
  1. PROTOPIC [Suspect]
     Indication: SEBORRHOEIC DERMATITIS
     Dosage: 0.03% /D, TOPICAL
     Route: 061

REACTIONS (4)
  - BURNING SENSATION [None]
  - FLUSHING [None]
  - PIGMENTATION DISORDER [None]
  - SKIN LESION [None]
